FAERS Safety Report 16698682 (Version 3)
Quarter: 2019Q3

REPORT INFORMATION
  Report Type: Report from Study
  Country: CA (occurrence: CA)
  Receive Date: 20190813
  Receipt Date: 20190912
  Transmission Date: 20191004
  Serious: Yes (Hospitalization, Other)
  Sender: FDA-Public Use
  Company Number: CA-GLAXOSMITHKLINE-CA2019AMR143701

PATIENT
  Age: 77 Year
  Sex: Female
  Weight: 70 kg

DRUGS (11)
  1. MEPOLIZUMAB [Suspect]
     Active Substance: MEPOLIZUMAB
     Indication: ASTHMA
     Dosage: 100 MG, Z, MONTHLY
     Route: 058
     Dates: start: 20180109
  2. DOMPERIDONE [Concomitant]
     Active Substance: DOMPERIDONE
     Indication: PRODUCT USED FOR UNKNOWN INDICATION
     Dosage: 10 MG, TID,  (THREE TIMES DAILY)
  3. VITAMIN D [Concomitant]
     Active Substance: VITAMIN D NOS
     Indication: PRODUCT USED FOR UNKNOWN INDICATION
     Dosage: 2000 DF, BID (TWICE DAILY)
  4. ZONALON [Concomitant]
     Active Substance: DOXEPIN HYDROCHLORIDE
     Indication: PRODUCT USED FOR UNKNOWN INDICATION
     Dosage: UNK, 5MCG + 200MG 2 INHALATIONS TWICE DAILY
  5. PROLIA [Concomitant]
     Active Substance: DENOSUMAB
     Indication: PRODUCT USED FOR UNKNOWN INDICATION
     Dosage: 60 MG (INJECTION EVERY 6 MONTHS)
     Route: 058
  6. MONTELUKAST [Concomitant]
     Active Substance: MONTELUKAST SODIUM
     Indication: PRODUCT USED FOR UNKNOWN INDICATION
     Dosage: 10 MG, QD (ONES DAILY)
  7. PANTOPRAZOLE [Concomitant]
     Active Substance: PANTOPRAZOLE
     Indication: PRODUCT USED FOR UNKNOWN INDICATION
     Dosage: 40 MG, QD (ONES DAILY)
  8. CALCIUM [Concomitant]
     Active Substance: CALCIUM
     Indication: PRODUCT USED FOR UNKNOWN INDICATION
     Dosage: 500 MG, BID (ONE TABLET TWICE DAILY)
  9. SPIRIVA [Concomitant]
     Active Substance: TIOTROPIUM BROMIDE MONOHYDRATE
     Indication: PRODUCT USED FOR UNKNOWN INDICATION
     Dosage: 2.5 UG, BID
  10. PRED FORTE [Concomitant]
     Active Substance: PREDNISOLONE ACETATE
     Indication: PRODUCT USED FOR UNKNOWN INDICATION
     Dosage: UNK
  11. PREDNISOLONE. [Concomitant]
     Active Substance: PREDNISOLONE
     Indication: PRODUCT USED FOR UNKNOWN INDICATION
     Dosage: UNK, QID

REACTIONS (10)
  - Pyelonephritis acute [Recovered/Resolved]
  - Product dose omission [Unknown]
  - Bacteraemia [Unknown]
  - Urosepsis [Not Recovered/Not Resolved]
  - Adverse drug reaction [Unknown]
  - Pyrexia [Unknown]
  - Infection [Not Recovered/Not Resolved]
  - Escherichia infection [Not Recovered/Not Resolved]
  - Urinary tract infection [Unknown]
  - Impaired work ability [Unknown]

NARRATIVE: CASE EVENT DATE: 20190803
